FAERS Safety Report 7017179-8 (Version None)
Quarter: 2010Q3

REPORT INFORMATION
  Report Type: 
  Country: None (occurrence: None)
  Receive Date: 20100928
  Receipt Date: 20100917
  Transmission Date: 20110219
  Serious: No
  Sender: FDA-Public Use
  Company Number: US-BIOGENIDEC-2010BI032635

PATIENT
  Sex: Female

DRUGS (1)
  1. TYSABRI [Suspect]
     Indication: MULTIPLE SCLEROSIS
     Route: 042
     Dates: start: 20080701

REACTIONS (6)
  - ASTHENIA [None]
  - DIZZINESS [None]
  - HEMIPLEGIA [None]
  - PAIN IN EXTREMITY [None]
  - TREMOR [None]
  - VAGINAL HAEMORRHAGE [None]
